FAERS Safety Report 25490602 (Version 2)
Quarter: 2025Q3

REPORT INFORMATION
  Report Type: Spontaneous
  Country: CN (occurrence: CN)
  Receive Date: 20250627
  Receipt Date: 20250705
  Transmission Date: 20251020
  Serious: Yes (Other)
  Sender: SANOFI AVENTIS
  Company Number: CN-MLMSERVICE-20250619-PI544858-00165-5

PATIENT
  Age: 46 Year
  Sex: Female

DRUGS (12)
  1. OXALIPLATIN [Suspect]
     Active Substance: OXALIPLATIN
     Indication: Diffuse large B-cell lymphoma stage III
     Dosage: 170 MG, QD (170 MG/DAY 1 Q2W)
     Dates: start: 202404, end: 202406
  2. OXALIPLATIN [Suspect]
     Active Substance: OXALIPLATIN
     Dosage: 150 MG, QD (150 MG/DAY 1 Q2W)
     Dates: start: 202407
  3. OXALIPLATIN [Suspect]
     Active Substance: OXALIPLATIN
     Dosage: 120 MG, QD (120 MG/DAY Q2W)
     Dates: start: 202408
  4. OXALIPLATIN [Suspect]
     Active Substance: OXALIPLATIN
     Dosage: 120 MG, QD (120 MG/DAY 1 Q2W)
     Dates: start: 202411
  5. GEMCITABINE [Suspect]
     Active Substance: GEMCITABINE
     Indication: Diffuse large B-cell lymphoma stage III
     Dosage: 1.7 G, QD (1.7 G/DAY 1, Q2W)
     Dates: start: 202404, end: 202406
  6. GEMCITABINE [Suspect]
     Active Substance: GEMCITABINE
     Dosage: 1 G, QD
     Dates: start: 202407
  7. GEMCITABINE [Suspect]
     Active Substance: GEMCITABINE
     Dosage: 1.2 G, QD
     Dates: start: 202408
  8. GEMCITABINE [Suspect]
     Active Substance: GEMCITABINE
     Dosage: 1 G, QD
     Dates: start: 202411
  9. ZUBERITAMAB [Suspect]
     Active Substance: ZUBERITAMAB
     Indication: Diffuse large B-cell lymphoma stage III
     Dates: start: 202404, end: 202406
  10. ZUBERITAMAB [Suspect]
     Active Substance: ZUBERITAMAB
     Dates: start: 202407
  11. TAMOXIFEN [Concomitant]
     Active Substance: TAMOXIFEN
     Indication: Hormone therapy
     Dates: start: 201911
  12. LEUPROLIDE ACETATE [Concomitant]
     Active Substance: LEUPROLIDE ACETATE
     Indication: Hormone therapy
     Dates: start: 202105

REACTIONS (1)
  - Myelosuppression [Unknown]

NARRATIVE: CASE EVENT DATE: 20240601
